FAERS Safety Report 6671489-2 (Version None)
Quarter: 2010Q2

REPORT INFORMATION
  Report Type: 
  Country: None (occurrence: None)
  Receive Date: 20100407
  Receipt Date: 20100331
  Transmission Date: 20101027
  Serious: Yes (Hospitalization)
  Sender: FDA-Public Use
  Company Number: JP-MERCK-1002USA02080

PATIENT
  Age: 79 Year
  Sex: Male
  Weight: 60 kg

DRUGS (3)
  1. PRIMAXIN [Suspect]
     Indication: PNEUMONIA
     Route: 042
     Dates: start: 20100112, end: 20100203
  2. ZOSYN [Concomitant]
     Indication: INFLAMMATION
     Route: 042
     Dates: start: 20100128, end: 20100201
  3. FLUMARIN [Concomitant]
     Indication: INFLAMMATION
     Route: 042
     Dates: start: 20100201, end: 20100203

REACTIONS (1)
  - EOSINOPHILIC PNEUMONIA [None]
